FAERS Safety Report 4579603-X (Version None)
Quarter: 2005Q1

REPORT INFORMATION
  Report Type: 
  Country: None (occurrence: None)
  Receive Date: 20050210
  Receipt Date: 20050126
  Transmission Date: 20050727
  Serious: Yes (Death, Hospitalization)
  Sender: FDA-Public Use
  Company Number: 2004AL000545

PATIENT
  Age: 19 Year
  Sex: Male

DRUGS (3)
  1. CLONAZEPAM [Suspect]
     Dosage: PO
     Route: 048
  2. OXYCODONE HCL [Suspect]
     Dosage: PO
     Route: 048
  3. ZOLPIDEM TARTRATE [Suspect]
     Dosage: PO
     Route: 048

REACTIONS (5)
  - BODY TEMPERATURE INCREASED [None]
  - CARDIO-RESPIRATORY ARREST [None]
  - GLASGOW COMA SCALE ABNORMAL [None]
  - INTENTIONAL MISUSE [None]
  - PUPIL FIXED [None]
